FAERS Safety Report 15001529 (Version 1)
Quarter: 2018Q2

REPORT INFORMATION
  Report Type: Spontaneous
  Country: FR (occurrence: FR)
  Receive Date: 20180612
  Receipt Date: 20180612
  Transmission Date: 20180711
  Serious: Yes (Hospitalization)
  Sender: FDA-Public Use
  Company Number: FR-PFIZER INC-2018233173

PATIENT
  Age: 79 Year
  Sex: Female
  Weight: 52 kg

DRUGS (9)
  1. BISOCE [Suspect]
     Active Substance: BISOPROLOL
     Indication: CARDIAC FAILURE
     Dosage: 1 DF, ONCE A DAY
     Route: 048
  2. CORTANCYL [Concomitant]
     Active Substance: PREDNISONE
     Dosage: 0.5 DF, 1X/DAY
     Route: 048
  3. INSPRA [Suspect]
     Active Substance: EPLERENONE
     Indication: CARDIAC FAILURE
     Dosage: 1 DF, ONCE A DAY
     Route: 048
  4. DUOPLAVIN [Concomitant]
     Active Substance: ASPIRIN\CLOPIDOGREL
     Indication: PULMONARY EMBOLISM
     Dosage: 1 DF, 1X/DAY
     Route: 048
  5. ENTRESTO [Suspect]
     Active Substance: SACUBITRIL\VALSARTAN
     Indication: CARDIAC FAILURE
     Dosage: 2 DF, ONCE A DAY
     Route: 048
     Dates: start: 201710, end: 20171221
  6. ELIQUIS [Concomitant]
     Active Substance: APIXABAN
     Indication: PULMONARY EMBOLISM
     Dosage: 2 DF, 1X/DAY
     Route: 048
  7. NOVONORM [Concomitant]
     Active Substance: REPAGLINIDE
     Route: 048
  8. INEXIUM /01479302/ [Concomitant]
     Active Substance: ESOMEPRAZOLE MAGNESIUM
     Dosage: 1 DF, 1X/DAY
     Route: 048
  9. LASILIX /00032601/ [Suspect]
     Active Substance: FUROSEMIDE
     Dosage: 1 DF, ONCE A DAY
     Route: 048

REACTIONS (2)
  - Rash erythematous [Recovering/Resolving]
  - Pruritus [Recovering/Resolving]

NARRATIVE: CASE EVENT DATE: 20171205
